FAERS Safety Report 8482901-0 (Version None)
Quarter: 2012Q3

REPORT INFORMATION
  Report Type: 
  Country: None (occurrence: None)
  Receive Date: 20120702
  Receipt Date: 20120625
  Transmission Date: 20120928
  Serious: Yes (Hospitalization)
  Sender: FDA-Public Use
  Company Number: US-TEVA-345156USA

PATIENT
  Sex: Female
  Weight: 104.42 kg

DRUGS (3)
  1. PROVIGIL [Suspect]
     Indication: MULTIPLE SCLEROSIS
     Dosage: 400 MILLIGRAM;
     Route: 048
     Dates: start: 20120428, end: 20120601
  2. NATALIZUMAB [Concomitant]
     Indication: MULTIPLE SCLEROSIS
  3. PROVIGIL [Suspect]
     Indication: FATIGUE
     Dosage: 200 MILLIGRAM;
     Route: 048
     Dates: end: 20120427

REACTIONS (3)
  - INCORRECT DOSE ADMINISTERED [None]
  - THROMBOSIS [None]
  - OFF LABEL USE [None]
